FAERS Safety Report 5314629-X (Version None)
Quarter: 2007Q2

REPORT INFORMATION
  Report Type: 
  Country: None (occurrence: None)
  Receive Date: 20070427
  Receipt Date: 20070412
  Transmission Date: 20071010
  Serious: Yes (Hospitalization)
  Sender: FDA-Public Use
  Company Number: 100#08#2007-01311

PATIENT
  Age: 46 Year
  Sex: Male

DRUGS (3)
  1. CARBAMAZEPINE [Suspect]
     Indication: DRUG WITHDRAWAL MAINTENANCE THERAPY
     Dosage: 1000 MG
  2. VENLAFAXINE (VENLAFAXINE) (VENLAFAXINE) [Concomitant]
  3. LORAZEPAM [Concomitant]

REACTIONS (6)
  - DRUG HYPERSENSITIVITY [None]
  - DRUG RASH WITH EOSINOPHILIA AND SYSTEMIC SYMPTOMS [None]
  - HALLUCINATION, AUDITORY [None]
  - HEPATOTOXICITY [None]
  - PNEUMONIA [None]
  - PYREXIA [None]
